FAERS Safety Report 10102132 (Version 1)
Quarter: 2014Q2

REPORT INFORMATION
  Report Type: Spontaneous
  Country: US (occurrence: None)
  Receive Date: 20140423
  Receipt Date: 20140423
  Transmission Date: 20141212
  Serious: Yes (Hospitalization)
  Sender: FDA-Public Use
  Company Number: None

PATIENT
  Age: 53 Year
  Sex: Female
  Weight: 60.33 kg

DRUGS (6)
  1. CARBOPLATIN [Suspect]
     Dates: end: 20120207
  2. PACLITAXEL [Suspect]
     Dates: end: 20120207
  3. COZAAR [Concomitant]
  4. MOTRIN [Concomitant]
  5. ZANTAC [Concomitant]
  6. ZOCOR [Concomitant]

REACTIONS (4)
  - Vaginal discharge [None]
  - Vaginal abscess [None]
  - Pyrexia [None]
  - Female genital tract fistula [None]
